FAERS Safety Report 9478669 (Version 2)
Quarter: 2013Q3

REPORT INFORMATION
  Report Type: Spontaneous
  Country: CA (occurrence: CA)
  Receive Date: 20130827
  Receipt Date: 20130912
  Transmission Date: 20140515
  Serious: Yes (Hospitalization)
  Sender: FDA-Public Use
  Company Number: CA-ROCHE-1266390

PATIENT
  Age: 19 Year
  Sex: Male

DRUGS (5)
  1. XOLAIR [Suspect]
     Indication: ASTHMA
     Route: 058
     Dates: start: 20100915
  2. SINGULAIR [Concomitant]
  3. SYMBICORT [Concomitant]
  4. AVAMYS [Concomitant]
  5. PREDNISONE [Concomitant]

REACTIONS (2)
  - Asthma [Unknown]
  - Inappropriate schedule of drug administration [Unknown]
